FAERS Safety Report 5284035-5 (Version None)
Quarter: 2007Q2

REPORT INFORMATION
  Report Type: 
  Country: None (occurrence: None)
  Receive Date: 20070402
  Receipt Date: 20070323
  Transmission Date: 20071010
  Serious: Yes (Other)
  Sender: FDA-Public Use
  Company Number: FR-PFIZER INC-2007023498

PATIENT
  Age: 41 Year
  Sex: Male

DRUGS (2)
  1. FRAGMIN [Suspect]
     Indication: PROPHYLAXIS
  2. INNOHEP [Suspect]

REACTIONS (1)
  - THROMBOCYTHAEMIA [None]
